FAERS Safety Report 8338387 (Version 5)
Quarter: 2014Q1

REPORT INFORMATION
  Report Type: Spontaneous
  Country: US (occurrence: US)
  Receive Date: 20120117
  Receipt Date: 20140303
  Transmission Date: 20141002
  Serious: Yes (Life-Threatening, Hospitalization)
  Sender: FDA-Public Use
  Company Number: US-JNJFOC-20111005723

PATIENT
  Age: 4 Year
  Sex: Male
  Weight: 19.96 kg

DRUGS (6)
  1. TYLENOL [Suspect]
     Route: 048
  2. TYLENOL [Suspect]
     Indication: PRODUCT USED FOR UNKNOWN INDICATION
     Route: 048
     Dates: start: 199702
  3. CHILDREN^S TYLENOL [Suspect]
     Route: 048
  4. CHILDREN^S TYLENOL [Suspect]
     Indication: INFLUENZA LIKE ILLNESS
     Route: 048
     Dates: start: 19970203, end: 19970207
  5. AMOXICILLIN [Concomitant]
     Indication: UPPER RESPIRATORY TRACT INFECTION
     Route: 065
     Dates: start: 19970125
  6. PHENERGAN [Concomitant]
     Indication: NAUSEA
     Route: 065
     Dates: start: 19970203

REACTIONS (3)
  - Acute hepatic failure [Recovered/Resolved with Sequelae]
  - Coma hepatic [Recovered/Resolved with Sequelae]
  - Hepatorenal syndrome [Recovered/Resolved with Sequelae]
